FAERS Safety Report 14165187 (Version 3)
Quarter: 2018Q1

REPORT INFORMATION
  Report Type: Spontaneous
  Country: US (occurrence: US)
  Receive Date: 20171107
  Receipt Date: 20180104
  Transmission Date: 20180508
  Serious: No
  Sender: FDA-Public Use
  Company Number: US-LUNDBECK-DKLU2036037

PATIENT
  Sex: Female

DRUGS (1)
  1. NORTHERA [Suspect]
     Active Substance: DROXIDOPA
     Indication: PRODUCT USED FOR UNKNOWN INDICATION
     Dosage: TITRATING
     Route: 048

REACTIONS (5)
  - Hypotension [Unknown]
  - Stress [Unknown]
  - Drug ineffective [Unknown]
  - Blood pressure orthostatic decreased [Unknown]
  - Drug dose omission [Unknown]
